FAERS Safety Report 5130713-8 (Version None)
Quarter: 2006Q4

REPORT INFORMATION
  Report Type: 
  Country: None (occurrence: None)
  Receive Date: 20061019
  Receipt Date: 20061011
  Transmission Date: 20070319
  Serious: Yes (Other)
  Sender: FDA-Public Use
  Company Number: JP-ROCHE-467238

PATIENT
  Age: 6 Year

DRUGS (1)
  1. ROCEPHIN [Suspect]
     Indication: SEPSIS
     Dosage: ROUTE REPORTED AS INTRAVENOUS (NOT OTHERWISE SPECIFIED)
     Route: 042
     Dates: start: 20060921, end: 20061004

REACTIONS (1)
  - CHOLELITHIASIS [None]
